FAERS Safety Report 8546037-2 (Version None)
Quarter: 2012Q3

REPORT INFORMATION
  Report Type: 
  Country: None (occurrence: None)
  Receive Date: 20120727
  Receipt Date: 20111207
  Transmission Date: 20120928
  Serious: No
  Sender: FDA-Public Use
  Company Number: US-ASTRAZENECA-2011SE73361

PATIENT
  Age: 44 Year
  Sex: Male
  Weight: 86.2 kg

DRUGS (5)
  1. PROPRANOLOL [Concomitant]
     Indication: BLOOD PRESSURE ABNORMAL
  2. HALOPERIDOL [Concomitant]
     Indication: PSYCHOTIC DISORDER
  3. LITHIUM CARBONATE [Concomitant]
     Indication: BIPOLAR DISORDER
  4. TRADODONE [Concomitant]
     Indication: SLEEP DISORDER
  5. SEROQUEL XR [Suspect]
     Indication: BIPOLAR DISORDER
     Route: 048
     Dates: start: 20010101

REACTIONS (4)
  - MALAISE [None]
  - DRUG DOSE OMISSION [None]
  - INSOMNIA [None]
  - APHAGIA [None]
